FAERS Safety Report 9795773 (Version 1)
Quarter: 2014Q1

REPORT INFORMATION
  Report Type: Spontaneous
  Country: IT (occurrence: IT)
  Receive Date: 20140103
  Receipt Date: 20140103
  Transmission Date: 20141002
  Serious: Yes (Other)
  Sender: FDA-Public Use
  Company Number: IT-SA-2014SA000349

PATIENT
  Age: 18 Year
  Sex: Male

DRUGS (3)
  1. CEREZYME [Suspect]
     Indication: GAUCHER^S DISEASE
     Dosage: DOSE : ONE INFUSION AT 3600 IU AND ONE INFUSION AT 3200 IU ALTERED EVERY 15 DAYS
     Route: 042
     Dates: start: 2009, end: 201010
  2. CEREZYME [Suspect]
     Indication: GAUCHER^S DISEASE
     Dosage: DOSE : 3600 IU ALTERED WITH 3200 IU
     Route: 042
     Dates: start: 20130708, end: 20131031
  3. CEREZYME [Suspect]
     Indication: GAUCHER^S DISEASE
     Dosage: DOSE : 3600 IU ALTERED WITH 3200 IU EVERY MONTH
     Route: 042
     Dates: start: 20131209

REACTIONS (3)
  - Paraesthesia [Recovered/Resolved]
  - Chest discomfort [Recovered/Resolved]
  - Dyspnoea [Recovered/Resolved]
